FAERS Safety Report 24152057 (Version 1)
Quarter: 2024Q3

REPORT INFORMATION
  Report Type: Spontaneous
  Country: US (occurrence: US)
  Receive Date: 20240730
  Receipt Date: 20240730
  Transmission Date: 20241017
  Serious: No
  Sender: SAREPTA THERAPEUTICS
  Company Number: US-SAREPTA THERAPEUTICS INC.-SRP2024-004500

PATIENT
  Age: 9 Year
  Sex: Male
  Weight: 53.5 kg

DRUGS (7)
  1. AMONDYS 45 [Suspect]
     Active Substance: CASIMERSEN
     Indication: Duchenne muscular dystrophy
     Dosage: 1500 MILLIGRAM, WEEKLY
     Route: 042
     Dates: start: 20211119, end: 20240221
  2. AMONDYS 45 [Suspect]
     Active Substance: CASIMERSEN
     Dosage: 1500 MILLIGRAM, WEEKLY
     Route: 042
     Dates: start: 20240306
  3. AMONDYS 45 [Suspect]
     Active Substance: CASIMERSEN
     Dosage: 1500 MILLIGRAM, WEEKLY
     Route: 042
     Dates: start: 20240403
  4. AMONDYS 45 [Suspect]
     Active Substance: CASIMERSEN
     Dosage: 1600 MILLIGRAM, WEEKLY
     Route: 042
     Dates: start: 20240410
  5. EMFLAZA [Concomitant]
     Active Substance: DEFLAZACORT
     Indication: Product used for unknown indication
     Dosage: 22.75 MILLIGRAM, QD
     Route: 048
  6. VITAMIN D NOS [Concomitant]
     Active Substance: CHOLECALCIFEROL\ERGOCALCIFEROL
     Indication: Product used for unknown indication
     Dosage: 1.25 MILLIGRAM, QD
     Route: 048
  7. TUMS [Concomitant]
     Active Substance: CALCIUM CARBONATE
     Indication: Product used for unknown indication
     Dosage: 750 MILLIGRAM, QD
     Route: 048

REACTIONS (3)
  - Underdose [Unknown]
  - Product dose omission issue [Unknown]
  - No adverse event [Unknown]

NARRATIVE: CASE EVENT DATE: 20240228
